FAERS Safety Report 10281163 (Version 1)
Quarter: 2014Q3

REPORT INFORMATION
  Report Type: Spontaneous
  Country: AT (occurrence: AT)
  Receive Date: 20140707
  Receipt Date: 20140707
  Transmission Date: 20150326
  Serious: Yes (Death, Hospitalization)
  Sender: FDA-Public Use
  Company Number: PHHY2014AT081689

PATIENT
  Sex: Male

DRUGS (16)
  1. AMSACRINE [Concomitant]
     Active Substance: AMSACRINE
  2. ETOPOSIDE. [Suspect]
     Active Substance: ETOPOSIDE
     Indication: HISTIOCYTOSIS HAEMATOPHAGIC
     Dosage: 150 MG/KG, UNK
  3. SIMULECT [Suspect]
     Active Substance: BASILIXIMAB
     Indication: HISTIOCYTOSIS HAEMATOPHAGIC
     Dosage: 1MG/KG/DOSE
  4. CYTARABINE. [Concomitant]
     Active Substance: CYTARABINE
  5. CYCLOPHOSPHAMIDE. [Concomitant]
     Active Substance: CYCLOPHOSPHAMIDE
  6. CICLOSPORIN [Suspect]
     Active Substance: CYCLOSPORINE
     Indication: PROPHYLAXIS AGAINST GRAFT VERSUS HOST DISEASE
     Dosage: 3 MG/KG, UNK
  7. DEXAMETHASONE. [Suspect]
     Active Substance: DEXAMETHASONE
     Dosage: 5 MG/M2, PER DAY
  8. CYTARABIN [Concomitant]
     Active Substance: CYTARABINE
  9. BUSULFAN [Concomitant]
     Active Substance: BUSULFAN
  10. MELPHALAN [Concomitant]
     Active Substance: MELPHALAN
  11. METHOTREXATE [Suspect]
     Active Substance: METHOTREXATE
     Indication: PROPHYLAXIS AGAINST GRAFT VERSUS HOST DISEASE
     Dosage: 2 MG/M2, UNK
  12. DEXAMETHASONE. [Suspect]
     Active Substance: DEXAMETHASONE
     Indication: HISTIOCYTOSIS HAEMATOPHAGIC
     Dosage: 10 MG/M2, PER DAY
  13. ATG-FRESENIUS [Suspect]
     Active Substance: LAPINE T-LYMPHOCYTE IMMUNE GLOBULIN
     Indication: PROPHYLAXIS AGAINST GRAFT VERSUS HOST DISEASE
  14. DAUNOXOME [Concomitant]
     Active Substance: DAUNORUBICIN CITRATE
  15. FLUDARABIN [Concomitant]
     Active Substance: FLUDARABINE PHOSPHATE
  16. FLUDARABINE [Concomitant]
     Active Substance: FLUDARABINE PHOSPHATE

REACTIONS (11)
  - Graft versus host disease in skin [Unknown]
  - Gastroenteritis norovirus [None]
  - Blindness [None]
  - Pulmonary haemorrhage [None]
  - Therapeutic response decreased [Unknown]
  - General physical health deterioration [None]
  - Acute respiratory distress syndrome [Fatal]
  - Decreased appetite [None]
  - Histiocytosis haematophagic [Unknown]
  - Nystagmus [None]
  - Tremor [None]
